FAERS Safety Report 9849651 (Version 1)
Quarter: 2013Q4

REPORT INFORMATION
  Report Type: Spontaneous
  Country: US (occurrence: None)
  Receive Date: 20131226
  Receipt Date: 20131226
  Transmission Date: 20140711
  Serious: Yes (Other)
  Sender: FDA-Public Use
  Company Number: PHEH2013US011869

PATIENT
  Age: 84 Year
  Sex: Female
  Weight: 57 kg

DRUGS (1)
  1. RECLAST (ZOLEDRONATE) SOLUTION FOR INJECTION [Suspect]
     Indication: OSTEOPOROSIS
     Dosage: 5 MG IN 100ML, INTRAVENOUS
     Route: 042
     Dates: start: 20130529

REACTIONS (3)
  - Injection site extravasation [None]
  - Injection site pain [None]
  - Injection site swelling [None]
